FAERS Safety Report 8557940-1 (Version None)
Quarter: 2012Q3

REPORT INFORMATION
  Report Type: 
  Country: None (occurrence: None)
  Receive Date: 20120801
  Receipt Date: 20120730
  Transmission Date: 20120928
  Serious: Yes (Hospitalization, Disabling)
  Sender: FDA-Public Use
  Company Number: PHEH2011US008807

PATIENT
  Sex: Female

DRUGS (10)
  1. DIAZEPAM [Concomitant]
     Dosage: UNK UKN, UNK
  2. PRAMIPEXOLE DIHYCHLORIDE [Concomitant]
     Dosage: UNK UKN, UNK
  3. TRILEPTAL [Concomitant]
     Indication: CONVULSION
     Dosage: 300 MG, QHS
     Route: 048
  4. CITALOPRAM HYDROBROMIDE [Concomitant]
     Indication: AFFECTIVE DISORDER
     Dosage: 10 MG, QHS
  5. GILENYA [Suspect]
     Indication: MULTIPLE SCLEROSIS
     Dosage: 0.5 MG, QD
     Route: 048
     Dates: start: 20110721
  6. ONDANSETRON [Concomitant]
     Dosage: UNK UKN, UNK
  7. METRONIDAZOLE [Concomitant]
     Dosage: UNK UKN, UNK
  8. BACLOFEN [Concomitant]
     Indication: MUSCLE SPASTICITY
     Dosage: 10 MG, PRN
     Route: 048
  9. SOLU-MEDROL [Concomitant]
     Dosage: 1 G, QMO
     Route: 042
  10. MIRAPEX [Concomitant]
     Indication: MUSCLE SPASTICITY
     Dosage: 0.125 MG, TID

REACTIONS (4)
  - DIZZINESS [None]
  - STAPHYLOCOCCAL INFECTION [None]
  - PYREXIA [None]
  - VERTIGO [None]
